FAERS Safety Report 15614975 (Version 1)
Quarter: 2018Q4

REPORT INFORMATION
  Report Type: Spontaneous
  Country: US (occurrence: US)
  Receive Date: 20181114
  Receipt Date: 20181114
  Transmission Date: 20190205
  Serious: Yes (Hospitalization)
  Sender: FDA-Public Use
  Company Number: US-CIPLA LTD.-2018US22423

PATIENT

DRUGS (1)
  1. WARFARIN [Suspect]
     Active Substance: WARFARIN
     Indication: ANTICOAGULANT THERAPY
     Dosage: 7.5 MG, UNK
     Route: 065

REACTIONS (3)
  - Mesenteric haematoma [Recovering/Resolving]
  - Intestinal haematoma [Recovering/Resolving]
  - Intestinal ischaemia [Recovering/Resolving]
